FAERS Safety Report 12731003 (Version 1)
Quarter: 2016Q3

REPORT INFORMATION
  Report Type: Report from Study
  Country: US (occurrence: US)
  Receive Date: 20160911
  Receipt Date: 20160911
  Transmission Date: 20161109
  Serious: Yes (Hospitalization, Other)
  Sender: FDA-Public Use
  Company Number: US-ABBVIE-16K-163-1718814-00

PATIENT
  Sex: Female
  Weight: 89.44 kg

DRUGS (4)
  1. SYNTHROID [Concomitant]
     Active Substance: LEVOTHYROXINE SODIUM
     Indication: HYPOTHYROIDISM
  2. METHOTREXATE. [Concomitant]
     Active Substance: METHOTREXATE
     Indication: RHEUMATOID ARTHRITIS
  3. HUMIRA [Suspect]
     Active Substance: ADALIMUMAB
     Indication: RHEUMATOID ARTHRITIS
     Route: 058
     Dates: start: 2006, end: 2011
  4. HUMIRA [Suspect]
     Active Substance: ADALIMUMAB
     Route: 058
     Dates: start: 201503, end: 201603

REACTIONS (14)
  - Joint swelling [Recovered/Resolved]
  - Device dislocation [Recovered/Resolved]
  - Pain [Recovered/Resolved]
  - Medical device site mass [Recovered/Resolved]
  - Post procedural complication [Recovered/Resolved]
  - Complication associated with device [Recovered/Resolved]
  - Arthralgia [Recovered/Resolved]
  - Incision site haemorrhage [Recovered/Resolved]
  - Streptococcal infection [Recovered/Resolved]
  - Incision site swelling [Recovered/Resolved]
  - Post procedural discharge [Recovered/Resolved]
  - Thrombosis [Recovered/Resolved]
  - Incision site infection [Recovered/Resolved]
  - Incision site erythema [Recovered/Resolved]

NARRATIVE: CASE EVENT DATE: 2013
